FAERS Safety Report 4805849-9 (Version None)
Quarter: 2005Q4

REPORT INFORMATION
  Report Type: 
  Country: None (occurrence: None)
  Receive Date: 20051021
  Receipt Date: 19990728
  Transmission Date: 20060501
  Serious: Yes (Hospitalization)
  Sender: FDA-Public Use
  Company Number: 10064251

PATIENT
  Age: 83 Year
  Sex: Female

DRUGS (4)
  1. LOPRIL TABS 25 MG [Suspect]
     Route: 048
  2. CORDARONE [Suspect]
  3. CORVASAL [Suspect]
  4. LASILIX [Suspect]

REACTIONS (1)
  - HYPERTHYROIDISM [None]
